FAERS Safety Report 23906572 (Version 1)
Quarter: 2024Q2

REPORT INFORMATION
  Report Type: Spontaneous
  Country: PT (occurrence: None)
  Receive Date: 20240528
  Receipt Date: 20240528
  Transmission Date: 20240716
  Serious: Yes (Hospitalization, Other)
  Sender: FDA-Public Use
  Company Number: PT-MLMSERVICE-20240513-PI058890-00290-1

PATIENT
  Age: 44 Year
  Sex: Male

DRUGS (2)
  1. ROPIVACAINE [Suspect]
     Active Substance: ROPIVACAINE
     Indication: Anaesthesia
     Dosage: INFUSION OF ROPIVACAINE 0.15% WHEN TRANSFERRED TO PACU
     Route: 008
  2. ROPIVACAINE [Suspect]
     Active Substance: ROPIVACAINE
     Indication: Anaesthesia
     Dosage: AN INITIAL BOLUS OF 7 ML ROPIVACAINE 0.2% WAS ADMINISTERED ; IN TOTAL
     Route: 008

REACTIONS (1)
  - Priapism [Recovered/Resolved]
